FAERS Safety Report 6406892-9 (Version None)
Quarter: 2009Q4

REPORT INFORMATION
  Report Type: 
  Country: None (occurrence: None)
  Receive Date: 20091020
  Receipt Date: 20091012
  Transmission Date: 20100525
  Serious: No
  Sender: FDA-Public Use
  Company Number: US-B.I. PHARMACEUTICALS,INC./RIDGEFIELD-2009-BP-11943BP

PATIENT
  Sex: Male

DRUGS (12)
  1. SPIRIVA [Suspect]
     Indication: POSTOPERATIVE RESPIRATORY DISTRESS
     Dosage: 18 MCG
     Route: 055
     Dates: start: 20081001
  2. LASIX [Concomitant]
     Indication: CORONARY ARTERY BYPASS
  3. COREG [Concomitant]
     Indication: HYPERTENSION
  4. LISINOPRIL [Concomitant]
     Indication: HYPERTENSION
  5. AVODART [Concomitant]
     Indication: PROSTATOMEGALY
  6. MULTIVITAMIN [Concomitant]
     Indication: MACULAR DEGENERATION
  7. COUMADIN [Concomitant]
     Indication: CORONARY ARTERY BYPASS
  8. ASPIRIN [Concomitant]
     Indication: PROPHYLAXIS
  9. CRANBERRY SUPPLEMENT [Concomitant]
     Indication: PROPHYLAXIS
  10. PRAVACHOL [Concomitant]
     Indication: BLOOD CHOLESTEROL INCREASED
  11. VITAMIN D [Concomitant]
     Indication: PROPHYLAXIS
  12. FIBER [Concomitant]
     Indication: PROPHYLAXIS

REACTIONS (1)
  - CANDIDIASIS [None]
